FAERS Safety Report 18469064 (Version 1)
Quarter: 2020Q4

REPORT INFORMATION
  Report Type: Spontaneous
  Country: GB (occurrence: GB)
  Receive Date: 20201105
  Receipt Date: 20201105
  Transmission Date: 20210114
  Serious: Yes (Other)
  Sender: FDA-Public Use
  Company Number: NVSC2020GB287729

PATIENT
  Age: 47 Year
  Sex: Male

DRUGS (32)
  1. HYDROXYCHLOROQUINE [Suspect]
     Active Substance: HYDROXYCHLOROQUINE
     Dosage: 400 MG, UNKNOWN
     Route: 065
  2. HUMIRA [Suspect]
     Active Substance: ADALIMUMAB
     Dosage: 1 MG
     Route: 065
     Dates: start: 201401, end: 201403
  3. COSENTYX [Suspect]
     Active Substance: SECUKINUMAB
     Indication: PRODUCT USED FOR UNKNOWN INDICATION
     Dosage: 300 MG, UNKNOWN
     Route: 065
     Dates: start: 201707, end: 2018
  4. METHOTREXATE. [Suspect]
     Active Substance: METHOTREXATE
     Indication: PRODUCT USED FOR UNKNOWN INDICATION
     Dosage: UNK, 10 MG TO 15 MG
     Route: 065
     Dates: start: 201804, end: 201807
  5. LEFLUNOMIDE. [Suspect]
     Active Substance: LEFLUNOMIDE
     Indication: PRODUCT USED FOR UNKNOWN INDICATION
     Dosage: 20 MG, UNKNOWN
     Route: 065
     Dates: start: 2010
  6. LEFLUNOMIDE. [Suspect]
     Active Substance: LEFLUNOMIDE
     Dosage: 20 MG, UNKNOWN
     Route: 065
     Dates: start: 2015, end: 201803
  7. METHOTREXATE. [Suspect]
     Active Substance: METHOTREXATE
     Dosage: 15 MG, UNKNOWN
     Route: 048
     Dates: start: 201810
  8. HYDROXYCHLOROQUINE [Suspect]
     Active Substance: HYDROXYCHLOROQUINE
     Indication: PRODUCT USED FOR UNKNOWN INDICATION
     Dosage: 400 MG, UNKNOWN
     Route: 065
     Dates: start: 201712, end: 201802
  9. NAPROXEN. [Concomitant]
     Active Substance: NAPROXEN
     Indication: PRODUCT USED FOR UNKNOWN INDICATION
     Dosage: 1000 MG, QD
     Route: 065
  10. SULFASALAZINE. [Suspect]
     Active Substance: SULFASALAZINE
     Dosage: 3 G, QD
     Route: 065
     Dates: start: 201901, end: 201902
  11. FUCIDIN [Concomitant]
     Active Substance: FUSIDATE SODIUM
     Indication: PSORIASIS
     Dosage: UNK
     Route: 065
  12. METHOTREXATE. [Suspect]
     Active Substance: METHOTREXATE
     Dosage: 25 MG, UNKNOWN
     Route: 048
     Dates: start: 201901, end: 201905
  13. SULFASALAZINE. [Suspect]
     Active Substance: SULFASALAZINE
     Dosage: 2 G, QD
     Route: 065
     Dates: start: 201812, end: 201901
  14. PREDNISOLON [Concomitant]
     Active Substance: PREDNISOLONE
     Dosage: 8 UNK
     Route: 065
     Dates: start: 201907, end: 201908
  15. PREDNISOLON [Concomitant]
     Active Substance: PREDNISOLONE
     Dosage: 5 MG, QD
     Route: 065
     Dates: start: 201911, end: 2020
  16. ABATACEPT [Concomitant]
     Active Substance: ABATACEPT
     Indication: PRODUCT USED FOR UNKNOWN INDICATION
     Dosage: 125 MG, UNKNOWN
     Route: 058
     Dates: start: 201807, end: 201901
  17. METHOTREXATE. [Suspect]
     Active Substance: METHOTREXATE
     Dosage: 20 MG, UNKNOWN
     Route: 048
     Dates: start: 201807, end: 2018
  18. LEFLUNOMIDE. [Suspect]
     Active Substance: LEFLUNOMIDE
     Dosage: 5 MG, UNKNOWN
     Route: 065
     Dates: start: 201403
  19. HUMIRA [Suspect]
     Active Substance: ADALIMUMAB
     Dosage: 1 DF, TIW
     Route: 058
  20. PREDNISOLON [Concomitant]
     Active Substance: PREDNISOLONE
     Indication: PRODUCT USED FOR UNKNOWN INDICATION
     Dosage: 10 MG, UNKNOWN
     Route: 065
     Dates: start: 201905, end: 2019
  21. PREDNISOLON [Concomitant]
     Active Substance: PREDNISOLONE
     Dosage: 8 MG, QD
     Route: 065
     Dates: start: 202003, end: 202005
  22. PREDNISOLON [Concomitant]
     Active Substance: PREDNISOLONE
     Dosage: 5 MG, UNKNOWN
     Route: 065
     Dates: start: 202005
  23. TOCILIZUMAB. [Concomitant]
     Active Substance: TOCILIZUMAB
     Indication: PRODUCT USED FOR UNKNOWN INDICATION
     Dosage: 162 MG, QW
     Route: 058
     Dates: start: 201804, end: 201807
  24. SULFASALAZINE. [Suspect]
     Active Substance: SULFASALAZINE
     Dosage: UNK
     Route: 065
     Dates: start: 201611, end: 201701
  25. HUMIRA [Suspect]
     Active Substance: ADALIMUMAB
     Indication: PRODUCT USED FOR UNKNOWN INDICATION
     Dosage: UNK
     Route: 065
     Dates: start: 200911
  26. HUMIRA [Suspect]
     Active Substance: ADALIMUMAB
     Dosage: 1 DF, Q4W
     Route: 058
     Dates: start: 201401, end: 201403
  27. HUMIRA [Suspect]
     Active Substance: ADALIMUMAB
     Dosage: UNK
     Route: 058
     Dates: start: 201702, end: 2017
  28. RITUXIMAB. [Concomitant]
     Active Substance: RITUXIMAB
     Indication: PRODUCT USED FOR UNKNOWN INDICATION
     Dosage: UNK
     Route: 065
  29. METHOTREXATE. [Suspect]
     Active Substance: METHOTREXATE
     Dosage: 30 MG, UNKNOWN
     Route: 058
     Dates: start: 201905, end: 201911
  30. SULFASALAZINE. [Suspect]
     Active Substance: SULFASALAZINE
     Indication: PRODUCT USED FOR UNKNOWN INDICATION
     Dosage: 2 G, QD
     Route: 065
     Dates: start: 201107
  31. SULFASALAZINE. [Suspect]
     Active Substance: SULFASALAZINE
     Dosage: 2 G, QD
     Route: 065
     Dates: start: 201811, end: 201812
  32. PREDNISOLON [Concomitant]
     Active Substance: PREDNISOLONE
     Dosage: 1 MG, QMO
     Route: 065
     Dates: start: 201908

REACTIONS (21)
  - Chest pain [Unknown]
  - Rheumatoid nodule [Recovering/Resolving]
  - Condition aggravated [Unknown]
  - Nausea [Unknown]
  - Joint injury [Unknown]
  - Mycobacterium tuberculosis complex test positive [Unknown]
  - Dry skin [Unknown]
  - Myocardial infarction [Unknown]
  - Cough [Recovered/Resolved]
  - Hypoaesthesia [Unknown]
  - Neuropathy peripheral [Recovering/Resolving]
  - Paraesthesia [Unknown]
  - Therapeutic product effect decreased [Unknown]
  - Drug ineffective [Unknown]
  - Joint swelling [Unknown]
  - Emphysema [Unknown]
  - Meniscus injury [Unknown]
  - Rash [Unknown]
  - Nodule [Unknown]
  - Cough [Unknown]
  - Therapeutic product effect delayed [Unknown]

NARRATIVE: CASE EVENT DATE: 2010
